FAERS Safety Report 19987699 (Version 1)
Quarter: 2021Q4

REPORT INFORMATION
  Report Type: Spontaneous
  Country: RU (occurrence: RU)
  Receive Date: 20211022
  Receipt Date: 20211022
  Transmission Date: 20220303
  Serious: Yes (Death, Other)
  Sender: FDA-Public Use
  Company Number: 2021A782898

PATIENT
  Age: 717 Month
  Sex: Male
  Weight: 58 kg

DRUGS (4)
  1. IMFINZI [Suspect]
     Active Substance: DURVALUMAB
     Indication: Non-small cell lung cancer
     Route: 042
     Dates: start: 20210114, end: 20210928
  2. ALMAGEL [Concomitant]
     Indication: Ulcer
     Route: 065
     Dates: start: 202105
  3. OMEPRAZOLE [Concomitant]
     Active Substance: OMEPRAZOLE
     Indication: Antiplatelet therapy
     Route: 065
     Dates: start: 202109
  4. BENZOCAINE [Concomitant]
     Active Substance: BENZOCAINE
     Indication: Antiplatelet therapy
     Route: 065
     Dates: start: 202109

REACTIONS (3)
  - Oesophagobronchial fistula [Fatal]
  - Pulmonary haemorrhage [Fatal]
  - Radiation oesophagitis [Unknown]

NARRATIVE: CASE EVENT DATE: 20210501
